FAERS Safety Report 21540005 (Version 8)
Quarter: 2025Q1

REPORT INFORMATION
  Report Type: Report from Study
  Country: CA (occurrence: CA)
  Receive Date: 20221102
  Receipt Date: 20250214
  Transmission Date: 20250409
  Serious: Yes (Other)
  Sender: ROCHE
  Company Number: CA-ROCHE-3208017

PATIENT
  Age: 52 Year
  Sex: Male
  Weight: 65.0 kg

DRUGS (4)
  1. OCREVUS [Suspect]
     Active Substance: OCRELIZUMAB
     Indication: Primary progressive multiple sclerosis
     Dosage: 300 MG AT DAY 0 AND 14, THEN 600 MG EVERY 6 MONTH??ON 04-NOV-2024, HE RECEIVED MOST RECENT DOSE OF
     Route: 042
     Dates: start: 20200915
  2. OCREVUS [Suspect]
     Active Substance: OCRELIZUMAB
     Route: 042
     Dates: start: 20240501
  3. OCREVUS [Suspect]
     Active Substance: OCRELIZUMAB
     Route: 042
  4. VITAMIN D [Concomitant]
     Active Substance: VITAMIN D NOS

REACTIONS (14)
  - Infusion related reaction [Recovered/Resolved]
  - Drug ineffective [Unknown]
  - Multiple sclerosis [Unknown]
  - Vascular access site extravasation [Recovered/Resolved]
  - Vascular access site swelling [Unknown]
  - Gait disturbance [Unknown]
  - Poor venous access [Unknown]
  - Incorrect dose administered [Unknown]
  - Spinal osteoarthritis [Not Recovered/Not Resolved]
  - Vertebral foraminal stenosis [Not Recovered/Not Resolved]
  - Urinary incontinence [Not Recovered/Not Resolved]
  - Nystagmus [Not Recovered/Not Resolved]
  - Dysarthria [Not Recovered/Not Resolved]
  - Muscle spasticity [Not Recovered/Not Resolved]

NARRATIVE: CASE EVENT DATE: 20221026
